FAERS Safety Report 6878098-0 (Version None)
Quarter: 2010Q2

REPORT INFORMATION
  Report Type: 
  Country: None (occurrence: None)
  Receive Date: 20100616
  Receipt Date: 20100219
  Transmission Date: 20101027
  Serious: No
  Sender: FDA-Public Use
  Company Number: DSA_42653_2010

PATIENT
  Sex: Female

DRUGS (2)
  1. XENAZINE [Suspect]
     Indication: HUNTINGTON'S CHOREA
     Dosage: 25 MG, 25 MG TABLET:  ONCE IN THE MORNING, ONCE AT NOON AND ONE HALF A TABLET AT NIGHT ORAL
     Route: 048
     Dates: start: 20091201
  2. LEXAPRO [Concomitant]

REACTIONS (1)
  - SEDATION [None]
